FAERS Safety Report 21861286 (Version 1)
Quarter: 2023Q1

REPORT INFORMATION
  Report Type: Spontaneous
  Country: US (occurrence: US)
  Receive Date: 20230113
  Receipt Date: 20230113
  Transmission Date: 20230417
  Serious: Yes (Hospitalization)
  Sender: FDA-Public Use
  Company Number: US-GE HEALTHCARE-2023CSU000194

PATIENT
  Age: 61 Year
  Sex: Female

DRUGS (13)
  1. OMNIPAQUE [Suspect]
     Active Substance: IOHEXOL
     Indication: Angiogram cerebral
     Dosage: UNK UNK, SINGLE
     Route: 013
  2. OMNIPAQUE [Suspect]
     Active Substance: IOHEXOL
     Indication: Intracranial aneurysm
  3. OMNIPAQUE [Suspect]
     Active Substance: IOHEXOL
     Indication: Carotid artery aneurysm
  4. ALPRAZOLAM [Concomitant]
     Active Substance: ALPRAZOLAM
     Dosage: 0.5 MG, QID
  5. AMLODIPINE [Concomitant]
     Active Substance: AMLODIPINE BESYLATE
     Dosage: 10 MG, QID
  6. ATORVASTATIN [Concomitant]
     Active Substance: ATORVASTATIN
     Dosage: 20 MG, QID
  7. BUSPIRONE [Concomitant]
     Active Substance: BUSPIRONE HYDROCHLORIDE
     Dosage: 5 MG, QID
  8. CLOPIDOGREL [Concomitant]
     Active Substance: CLOPIDOGREL BISULFATE
     Dosage: 75 MG, QID
  9. DULOXETINE [Concomitant]
     Active Substance: DULOXETINE
     Dosage: 30 MG, QID
  10. GABAPENTIN [Concomitant]
     Active Substance: GABAPENTIN
     Dosage: 80 MG, BID
  11. INSULIN NOS [Concomitant]
     Active Substance: INSULIN NOS
     Dosage: 20 U, QID
  12. OXYBUTYNIN [Concomitant]
     Active Substance: OXYBUTYNIN
     Dosage: 10 MG, QID
  13. PROPRANOLOL [Concomitant]
     Active Substance: PROPRANOLOL HYDROCHLORIDE
     Dosage: 40 MG, QID

REACTIONS (1)
  - Contrast encephalopathy [Recovered/Resolved]
